FAERS Safety Report 23152643 (Version 3)
Quarter: 2023Q4

REPORT INFORMATION
  Report Type: Spontaneous
  Country: US (occurrence: US)
  Receive Date: 20231107
  Receipt Date: 20231230
  Transmission Date: 20240110
  Serious: Yes (Other)
  Sender: FDA-Public Use
  Company Number: US-UNITED THERAPEUTICS-UNT-2023-031158

PATIENT
  Sex: Female

DRUGS (22)
  1. REMODULIN [Suspect]
     Active Substance: TREPROSTINIL
     Indication: Pulmonary arterial hypertension
     Dosage: 0.03618 ?G/KG, CONTINUING
     Route: 058
     Dates: start: 2023
  2. REMODULIN [Suspect]
     Active Substance: TREPROSTINIL
     Dosage: 0.03021 ?G/KG (PUMP RATE 29 MICROL/HR), CONTINUING
     Route: 058
     Dates: start: 2023
  3. REMODULIN [Suspect]
     Active Substance: TREPROSTINIL
     Dosage: UNK, CONTINUING
     Route: 058
     Dates: start: 202307
  4. REMODULIN [Suspect]
     Active Substance: TREPROSTINIL
     Indication: Pulmonary arterial hypertension
     Dosage: 0.03618 ?G/KG (INFUSION RATE OF 29 MCL/HOUR), CONTINUING
     Route: 058
     Dates: start: 2023
  5. REMODULIN [Suspect]
     Active Substance: TREPROSTINIL
     Dosage: UNK, CONTINUING
     Route: 058
     Dates: start: 2023
  6. LIDOCAINE HYDROCHLORIDE [Suspect]
     Active Substance: DEXTROSE MONOHYDRATE\EPINEPHRINE\EPINEPHRINE BITARTRATE\LIDOCAINE\LIDOCAINE HYDROCHLORIDE\LIDOCAINE
     Indication: Product used for unknown indication
     Dosage: UNK
     Route: 065
  7. TYLENOL [Concomitant]
     Active Substance: ACETAMINOPHEN
     Indication: Product used for unknown indication
     Dosage: 650 MG (2 TABLETS), EVERY 4 HOURS AS NEEDED
     Route: 048
  8. LETAIRIS [Concomitant]
     Active Substance: AMBRISENTAN
     Indication: Pulmonary arterial hypertension
     Dosage: 5 MG, QD (FOR 2 WEEKS)
     Route: 048
  9. LETAIRIS [Concomitant]
     Active Substance: AMBRISENTAN
     Dosage: 10 MG (2 TABLETS), QD
     Route: 048
     Dates: start: 2023
  10. ELIQUIS [Concomitant]
     Active Substance: APIXABAN
     Indication: Pulmonary embolism
     Dosage: 5 MG, BID
     Route: 048
  11. VITAMIN C [Concomitant]
     Active Substance: ASCORBIC ACID
     Indication: Product used for unknown indication
     Dosage: 500 MG, QD
     Route: 048
  12. LASIX [Concomitant]
     Active Substance: FUROSEMIDE
     Indication: Oedema peripheral
     Dosage: 20 MG, QOD
     Route: 048
  13. LASIX [Concomitant]
     Active Substance: FUROSEMIDE
     Dosage: 40 MG, QOD
     Route: 048
  14. MAGNESIUM OXIDE [Concomitant]
     Active Substance: MAGNESIUM OXIDE
     Indication: Product used for unknown indication
     Dosage: 400 MG, QD
     Route: 048
  15. NORETHINDRONE [Concomitant]
     Active Substance: NORETHINDRONE
     Indication: Product used for unknown indication
     Dosage: 0.35 MG, QD
     Route: 048
  16. PROTONIX [Concomitant]
     Active Substance: PANTOPRAZOLE SODIUM
     Indication: Product used for unknown indication
     Dosage: 20 MG, QD (EVERY MORNING BEFORE BREAKFAST)
     Route: 048
  17. K-DUR [Concomitant]
     Active Substance: POTASSIUM CHLORIDE
     Indication: Product used for unknown indication
     Dosage: 20 MEQ, QD
     Route: 048
  18. COMPAZINE [Concomitant]
     Active Substance: PROCHLORPERAZINE MALEATE
     Indication: Nausea
     Dosage: 10 MG, Q6H (AS NEEDED)
     Route: 048
  19. COMPAZINE [Concomitant]
     Active Substance: PROCHLORPERAZINE MALEATE
     Indication: Vomiting
  20. ADEMPAS [Concomitant]
     Active Substance: RIOCIGUAT
     Indication: Pulmonary arterial hypertension
     Dosage: 2.5 MG, TID
     Route: 048
  21. DESYREL [Concomitant]
     Active Substance: TRAZODONE HYDROCHLORIDE
     Indication: Product used for unknown indication
     Dosage: 25 MG (1/2 TABLET), QD (EVERY NIGHT)
     Route: 048
  22. LEVOFLOXACIN [Concomitant]
     Active Substance: LEVOFLOXACIN
     Indication: Product used for unknown indication
     Dosage: 750 MG, QD
     Route: 048

REACTIONS (9)
  - Major depression [Unknown]
  - Infusion site irritation [Recovered/Resolved]
  - Infusion site pain [Recovered/Resolved]
  - Infusion site rash [Recovered/Resolved]
  - Infusion site infection [Recovered/Resolved]
  - Drug hypersensitivity [Not Recovered/Not Resolved]
  - Inappropriate affect [Not Recovered/Not Resolved]
  - Alcohol use disorder [Recovered/Resolved]
  - Treatment noncompliance [Not Recovered/Not Resolved]

NARRATIVE: CASE EVENT DATE: 20230101
